FAERS Safety Report 18576986 (Version 2)
Quarter: 2020Q4

REPORT INFORMATION
  Report Type: Spontaneous
  Country: US (occurrence: US)
  Receive Date: 20201204
  Receipt Date: 20201211
  Transmission Date: 20210114
  Serious: No
  Sender: FDA-Public Use
  Company Number: US-GLAXOSMITHKLINE-US2020233741

PATIENT
  Age: 69 Year
  Sex: Female

DRUGS (3)
  1. NUCALA [Suspect]
     Active Substance: MEPOLIZUMAB
     Indication: ASTHMA
     Dosage: 300 MG, CYC
     Dates: start: 20201102, end: 202011
  2. TRELEGY ELLIPTA [Concomitant]
     Active Substance: FLUTICASONE FUROATE\UMECLIDINIUM BROMIDE\VILANTEROL TRIFENATATE
     Indication: PRODUCT USED FOR UNKNOWN INDICATION
     Dosage: UNK
  3. NUCALA [Suspect]
     Active Substance: MEPOLIZUMAB
     Indication: EOSINOPHILIC GRANULOMATOSIS WITH POLYANGIITIS

REACTIONS (10)
  - Hypersensitivity [Unknown]
  - Glossodynia [Recovered/Resolved]
  - Gingival ulceration [Not Recovered/Not Resolved]
  - Swollen tongue [Recovered/Resolved]
  - Wrong technique in device usage process [Unknown]
  - Underdose [Unknown]
  - Oral discomfort [Unknown]
  - Urticaria [Unknown]
  - Mouth ulceration [Recovering/Resolving]
  - Adverse drug reaction [Unknown]

NARRATIVE: CASE EVENT DATE: 202011
